FAERS Safety Report 7176665-0 (Version None)
Quarter: 2010Q4

REPORT INFORMATION
  Report Type: 
  Country: None (occurrence: None)
  Receive Date: 20101220
  Receipt Date: 20101207
  Transmission Date: 20110411
  Serious: Yes (Other)
  Sender: FDA-Public Use
  Company Number: US-JNJFOC-20101203750

PATIENT
  Sex: Female

DRUGS (2)
  1. MYLANTA MAXIMUM STRENGTH ORIGINAL [Suspect]
     Indication: COLECTOMY
     Route: 048
  2. MYLANTA MAXIMUM STRENGTH ORIGINAL [Suspect]
     Route: 048

REACTIONS (3)
  - INCORRECT DOSE ADMINISTERED [None]
  - PANCREATITIS [None]
  - PRODUCT QUALITY ISSUE [None]
